FAERS Safety Report 6138607-6 (Version None)
Quarter: 2009Q1

REPORT INFORMATION
  Report Type: 
  Country: None (occurrence: None)
  Receive Date: 20090326
  Receipt Date: 20090316
  Transmission Date: 20090719
  Serious: Yes (Hospitalization)
  Sender: FDA-Public Use
  Company Number: TIF2009A00021

PATIENT
  Age: 56 Year
  Sex: Female

DRUGS (3)
  1. ACTOPLUS MET [Suspect]
     Indication: DIABETES MELLITUS
     Dosage: (1 TAB., 2 IN 1 D)   ORAL
     Route: 048
     Dates: start: 20081229, end: 20090129
  2. NPH INSULIN [Suspect]
     Indication: DIABETES MELLITUS
     Dosage: (1 DF,1 IN 1 D) SUBCUTANEOUS
     Route: 058
     Dates: start: 20080101
  3. NOVOLOG [Suspect]
     Indication: DIABETES MELLITUS
     Dosage: (1 DF,3 IN 1 D), SUBCUTANEOUS
     Route: 058
     Dates: start: 20080101

REACTIONS (3)
  - HYPOGLYCAEMIC COMA [None]
  - SOPOR [None]
  - UNRESPONSIVE TO STIMULI [None]
